FAERS Safety Report 7687302-0 (Version None)
Quarter: 2011Q3

REPORT INFORMATION
  Report Type: 
  Country: None (occurrence: None)
  Receive Date: 20110816
  Receipt Date: 20110803
  Transmission Date: 20111222
  Serious: Yes (Hospitalization)
  Sender: FDA-Public Use
  Company Number: DE-CELGENEUS-062-21880-10090770

PATIENT
  Age: 49 Year
  Sex: Female
  Weight: 50 kg

DRUGS (12)
  1. HEPARIN [Concomitant]
     Indication: THROMBOSIS PROPHYLAXIS
     Route: 041
     Dates: start: 20100903
  2. CEFUROXIME [Concomitant]
     Dosage: 20 MILLILITER
     Route: 065
  3. NOXAFIL [Concomitant]
     Dosage: 20 MILLILITER
     Route: 065
     Dates: start: 20100901
  4. SANDIMMUNE [Concomitant]
     Dosage: 50 MILLIGRAM
     Route: 065
  5. ACYCLOVIR [Concomitant]
     Dosage: 800 MILLIGRAM
     Route: 065
  6. LOSNESIUM [Concomitant]
     Dosage: 50 MILLIGRAM
     Route: 065
  7. ASPIRIN [Concomitant]
     Dosage: 200 MILLIGRAM
     Route: 065
  8. FOLIC ACID [Concomitant]
     Dosage: .4 MILLIGRAM
     Route: 048
  9. DRIDASE [Concomitant]
     Dosage: 15 MILLIGRAM
     Route: 065
  10. COTRIM [Concomitant]
     Dosage: 10 MILLILITER
     Route: 065
  11. REVLIMID [Suspect]
     Dosage: 10 MILLIGRAM
     Route: 048
     Dates: start: 20100819, end: 20100902
  12. PANTOPRAZOLE [Concomitant]
     Dosage: 40 MILLIGRAM
     Route: 048

REACTIONS (1)
  - ACUTE GRAFT VERSUS HOST DISEASE IN INTESTINE [None]
